FAERS Safety Report 18458220 (Version 1)
Quarter: 2020Q4

REPORT INFORMATION
  Report Type: Report from Study
  Country: CH (occurrence: CH)
  Receive Date: 20201103
  Receipt Date: 20201103
  Transmission Date: 20210114
  Serious: Yes (Other)
  Sender: FDA-Public Use
  Company Number: CH-IPSEN BIOPHARMACEUTICALS, INC.-2020-21145

PATIENT
  Age: 94 Month
  Sex: Male

DRUGS (2)
  1. BOTULINUM TOXIN TYPE A [Suspect]
     Active Substance: BOTULINUM TOXIN TYPE A
     Indication: MUSCLE SPASTICITY
     Dosage: 50 IU IN GASTROCNEMIUS; 50 IU IN SOLEUS
     Route: 030
  2. BOTULINUM TOXIN TYPE A [Suspect]
     Active Substance: BOTULINUM TOXIN TYPE A
     Indication: MUSCLE SPASTICITY

REACTIONS (1)
  - Neuropathic muscular atrophy [Unknown]
